FAERS Safety Report 9827826 (Version 2)
Quarter: 2014Q1

REPORT INFORMATION
  Report Type: Report from Study
  Country: CA (occurrence: CA)
  Receive Date: 20140117
  Receipt Date: 20140117
  Transmission Date: 20141002
  Serious: Yes (Death, Hospitalization)
  Sender: FDA-Public Use
  Company Number: CA-BRISTOL-MYERS SQUIBB COMPANY-19953678

PATIENT
  Age: 88 Year
  Sex: Male

DRUGS (19)
  1. ORENCIA [Suspect]
     Indication: RHEUMATOID ARTHRITIS
     Dosage: 1 DF : 750 UNITS NOS.
     Dates: start: 20130426, end: 20131129
  2. METOPROLOL [Concomitant]
  3. FUROSEMIDE [Concomitant]
  4. PREDNISONE [Concomitant]
  5. CALCIUM [Concomitant]
  6. TECTA [Concomitant]
  7. VITAMIN D [Concomitant]
  8. ALENDRONATE [Concomitant]
  9. SIMVASTATIN [Concomitant]
  10. SENNA [Concomitant]
  11. GABAPENTIN [Concomitant]
  12. ASPIRIN [Concomitant]
  13. PRADAXA [Concomitant]
  14. HYDROMORPH [Concomitant]
  15. ACETAMINOPHEN [Concomitant]
  16. NITROGLYCERIN PATCH [Concomitant]
  17. ATROVENT [Concomitant]
  18. SALBUTAMOL [Concomitant]
  19. ADVAIR [Concomitant]

REACTIONS (4)
  - Pneumonia [Fatal]
  - Dyspnoea [Unknown]
  - Cough [Unknown]
  - Condition aggravated [Unknown]
